FAERS Safety Report 9917126 (Version 1)
Quarter: 2014Q1

REPORT INFORMATION
  Report Type: Spontaneous
  Country: US (occurrence: US)
  Receive Date: 20140221
  Receipt Date: 20140221
  Transmission Date: 20141002
  Serious: No
  Sender: FDA-Public Use
  Company Number: US-009507513-1402USA009041

PATIENT
  Sex: Male

DRUGS (4)
  1. DULERA [Suspect]
     Indication: ASTHMA
     Dosage: 200 MCG/5MCG TWICE DAILY
     Route: 055
  2. LEVOFLOXACIN [Concomitant]
     Indication: PNEUMONIA
  3. AZITHROMYCIN [Concomitant]
     Indication: PNEUMONIA
  4. ALBUTEROL [Concomitant]
     Indication: ASTHMA

REACTIONS (1)
  - Dysphonia [Not Recovered/Not Resolved]
